FAERS Safety Report 18052257 (Version 3)
Quarter: 2020Q4

REPORT INFORMATION
  Report Type: Report from Study
  Country: GB (occurrence: GB)
  Receive Date: 20200721
  Receipt Date: 20201211
  Transmission Date: 20210113
  Serious: Yes (Other)
  Sender: FDA-Public Use
  Company Number: NVSC2020GB164393

PATIENT
  Sex: Male

DRUGS (1)
  1. HYRIMOZ [Suspect]
     Active Substance: ADALIMUMAB-ADAZ
     Indication: PSORIATIC ARTHROPATHY
     Dosage: 1 DF, Q2W
     Route: 058
     Dates: start: 20190516

REACTIONS (19)
  - Back pain [Not Recovered/Not Resolved]
  - Feeling abnormal [Unknown]
  - Chest discomfort [Unknown]
  - Arthralgia [Not Recovered/Not Resolved]
  - Aphonia [Recovered/Resolved]
  - Labyrinthitis [Unknown]
  - Peripheral swelling [Unknown]
  - Insomnia [Not Recovered/Not Resolved]
  - Asthma [Unknown]
  - Deafness unilateral [Unknown]
  - Vocal cord disorder [Unknown]
  - Oropharyngeal discomfort [Not Recovered/Not Resolved]
  - Pain in extremity [Unknown]
  - Respiratory fume inhalation disorder [Unknown]
  - Wheezing [Unknown]
  - Pharyngitis [Unknown]
  - Psoriasis [Recovering/Resolving]
  - Somnolence [Unknown]
  - COVID-19 [Recovering/Resolving]
